FAERS Safety Report 10736675 (Version 2)
Quarter: 2015Q1

REPORT INFORMATION
  Report Type: Spontaneous
  Country: JP (occurrence: None)
  Receive Date: 20150122
  Receipt Date: 20150211
  Transmission Date: 20150721
  Serious: Yes (Hospitalization)
  Sender: FDA-Public Use
  Company Number: 2015BCR00002

PATIENT
  Age: 85 Year
  Sex: Female

DRUGS (8)
  1. ALDACTONE [Concomitant]
     Active Substance: SPIRONOLACTONE
  2. WARFARIN (WARFARIN POTASSIUM) [Concomitant]
  3. SUNRYTHM (PILSICANIDE HYDROCHLORIDE HYDRATE) [Concomitant]
  4. CEFTRIAXONE SODIUM HYDRATE [Suspect]
     Active Substance: CEFTRIAXONE SODIUM
     Indication: PNEUMONIA
     Route: 042
     Dates: start: 20141226, end: 20141228
  5. ARTIST (CARVEDILOL) [Concomitant]
  6. PITAVASTATIN CA OD (PITAVASTATIN CALCIUM) [Concomitant]
  7. RAPIACTA [Suspect]
     Active Substance: PERAMIVIR
     Indication: INFLUENZA
     Route: 042
     Dates: start: 20141226, end: 20141226
  8. LASIX [Concomitant]
     Active Substance: FUROSEMIDE

REACTIONS (8)
  - Cholelithiasis [None]
  - Hepatic function abnormal [None]
  - Alanine aminotransferase increased [None]
  - Urine output decreased [None]
  - Cardiomegaly [None]
  - Hepatic congestion [None]
  - Aspartate aminotransferase increased [None]
  - Pulmonary oedema [None]

NARRATIVE: CASE EVENT DATE: 20141227
